FAERS Safety Report 8578903-6 (Version None)
Quarter: 2012Q3

REPORT INFORMATION
  Report Type: 
  Country: None (occurrence: None)
  Receive Date: 20120808
  Receipt Date: 20120730
  Transmission Date: 20120928
  Serious: No
  Sender: FDA-Public Use
  Company Number: US-ASTRAZENECA-2011SE41556

PATIENT
  Age: 53 Year
  Sex: Male
  Weight: 104.3 kg

DRUGS (12)
  1. BISMUTH SUBSALICYLATE [Concomitant]
     Dosage: ON OCCASION
  2. NEXIUM [Suspect]
     Indication: GASTROOESOPHAGEAL REFLUX DISEASE
     Dosage: EVERY DAY
     Route: 048
     Dates: start: 20010101
  3. ROLAIDS [Concomitant]
  4. LOSARTAN POTASSIUM [Concomitant]
  5. CALCIUM CARBONATE [Concomitant]
     Indication: OSTEOPOROSIS
  6. PROPRANOLOL [Concomitant]
  7. NEXIUM [Suspect]
     Route: 048
     Dates: start: 20060412
  8. PRILOSEC [Concomitant]
     Indication: GASTROOESOPHAGEAL REFLUX DISEASE
  9. LORTAB [Concomitant]
     Dates: start: 20110706
  10. NEXIUM [Suspect]
     Route: 048
     Dates: start: 20010101
  11. BONIVA [Concomitant]
     Indication: OSTEOPOROSIS
  12. LEVAQUIN [Concomitant]
     Route: 048
     Dates: start: 20100413

REACTIONS (13)
  - BONE PAIN [None]
  - OSTEOARTHRITIS [None]
  - OSTEOPENIA [None]
  - LATERAL PATELLAR COMPRESSION SYNDROME [None]
  - OSTEOPOROSIS [None]
  - JOINT DISLOCATION [None]
  - BONE LOSS [None]
  - ANXIETY [None]
  - HYPOVITAMINOSIS [None]
  - COMPLEX REGIONAL PAIN SYNDROME [None]
  - ANXIETY DISORDER [None]
  - TIBIA FRACTURE [None]
  - LOWER LIMB FRACTURE [None]
